FAERS Safety Report 4967261-1 (Version None)
Quarter: 2006Q2

REPORT INFORMATION
  Report Type: 
  Country: None (occurrence: None)
  Receive Date: 20060403
  Receipt Date: 20051205
  Transmission Date: 20061013
  Serious: Yes (Other)
  Sender: FDA-Public Use
  Company Number: 2006019295

PATIENT
  Age: 94 Year
  Sex: Female

DRUGS (7)
  1. BEXTRA [Suspect]
     Indication: ARTHRITIS
     Dosage: (10 MG)
     Dates: start: 20030930
  2. BEXTRA [Suspect]
     Indication: NECK PAIN
     Dosage: (10 MG)
     Dates: start: 20030930
  3. IMDUR [Concomitant]
  4. ALLOPURINOL [Concomitant]
  5. PINDOLOL [Concomitant]
  6. SULAR [Concomitant]
  7. PRINIVIL [Concomitant]

REACTIONS (15)
  - ACTIVITIES OF DAILY LIVING IMPAIRED [None]
  - ASTHENIA [None]
  - BUTTOCK PAIN [None]
  - CARPAL TUNNEL SYNDROME [None]
  - CONFUSIONAL STATE [None]
  - ELECTROLYTE IMBALANCE [None]
  - FALL [None]
  - FEMUR FRACTURE [None]
  - GENERAL PHYSICAL HEALTH DETERIORATION [None]
  - HIP FRACTURE [None]
  - HYPONATRAEMIA [None]
  - PROCTALGIA [None]
  - STEVENS-JOHNSON SYNDROME [None]
  - TRANSIENT ISCHAEMIC ATTACK [None]
  - URINARY INCONTINENCE [None]
